FAERS Safety Report 6557468-4 (Version None)
Quarter: 2010Q1

REPORT INFORMATION
  Report Type: 
  Country: None (occurrence: None)
  Receive Date: 20100129
  Receipt Date: 20100119
  Transmission Date: 20100710
  Serious: Yes (Death, Life-Threatening, Hospitalization)
  Sender: FDA-Public Use
  Company Number: CA-JNJFOC-20090400286

PATIENT
  Sex: Male

DRUGS (4)
  1. REMICADE [Suspect]
     Indication: CROHN'S DISEASE
     Route: 042
  2. REMICADE [Suspect]
     Route: 042
  3. REMICADE [Suspect]
     Route: 042
  4. REMICADE [Suspect]
     Route: 042

REACTIONS (8)
  - ABDOMINAL SEPSIS [None]
  - CROHN'S DISEASE [None]
  - DEVICE RELATED SEPSIS [None]
  - ENTEROCUTANEOUS FISTULA [None]
  - MALNUTRITION [None]
  - PELVIC ABSCESS [None]
  - SMALL INTESTINAL OBSTRUCTION [None]
  - WOUND DEHISCENCE [None]
